FAERS Safety Report 4744449-6 (Version None)
Quarter: 2005Q3

REPORT INFORMATION
  Report Type: 
  Country: None (occurrence: None)
  Receive Date: 20050809
  Receipt Date: 20050802
  Transmission Date: 20060218
  Serious: Yes (Other)
  Sender: FDA-Public Use
  Company Number: 2005092672

PATIENT
  Age: 91 Year
  Sex: Female
  Weight: 35.3806 kg

DRUGS (7)
  1. CELEBREX [Suspect]
     Indication: PAIN
     Dosage: 200 MG (200 MG, 1 IN 1 D), ORAL
     Route: 048
  2. ATENOLOL [Concomitant]
  3. DURAGESIC-100 [Concomitant]
  4. COMPAZINE [Concomitant]
  5. RANITIDINE HCL [Concomitant]
  6. AMITRIPTYLINE HCL [Concomitant]
  7. DIGOXIN [Concomitant]

REACTIONS (4)
  - ABASIA [None]
  - FALL [None]
  - HEADACHE [None]
  - HEART RATE DECREASED [None]
